FAERS Safety Report 4809189-3 (Version None)
Quarter: 2005Q4

REPORT INFORMATION
  Report Type: 
  Country: None (occurrence: None)
  Receive Date: 20051021
  Receipt Date: 20050919
  Transmission Date: 20060501
  Serious: Yes (Hospitalization, Other)
  Sender: FDA-Public Use
  Company Number: 2005BH001896

PATIENT
  Sex: Female

DRUGS (1)
  1. SUPRANE [Suspect]
     Indication: ANAESTHESIA
     Dosage: INH
     Route: 055
     Dates: start: 20050801, end: 20050801

REACTIONS (3)
  - ACCIDENTAL EXPOSURE [None]
  - EYE BURNS [None]
  - ULCERATIVE KERATITIS [None]
